FAERS Safety Report 7804866-4 (Version None)
Quarter: 2011Q4

REPORT INFORMATION
  Report Type: 
  Country: None (occurrence: None)
  Receive Date: 20111010
  Receipt Date: 20110930
  Transmission Date: 20120403
  Serious: Yes (Other)
  Sender: FDA-Public Use
  Company Number: US-MERCK-1106USA02914

PATIENT
  Age: 60 Year
  Sex: Female
  Weight: 64 kg

DRUGS (1)
  1. FOSAMAX [Suspect]
     Indication: OSTEOPOROSIS
     Route: 048
     Dates: end: 20070101

REACTIONS (12)
  - ARTHROPATHY [None]
  - DEPRESSION [None]
  - OSTEONECROSIS OF JAW [None]
  - FAECAL INCONTINENCE [None]
  - ANXIETY [None]
  - BLADDER DISORDER [None]
  - THYROID DISORDER [None]
  - ULCER [None]
  - CHRONIC OBSTRUCTIVE PULMONARY DISEASE [None]
  - BONE LOSS [None]
  - JAW DISORDER [None]
  - BACK PAIN [None]
